FAERS Safety Report 5321570-5 (Version None)
Quarter: 2007Q2

REPORT INFORMATION
  Report Type: 
  Country: None (occurrence: None)
  Receive Date: 20070220
  Receipt Date: 20061106
  Transmission Date: 20071010
  Serious: No
  Sender: FDA-Public Use
  Company Number: TPA2006A01988

PATIENT
  Age: 64 Year
  Sex: Female
  Weight: 72.5755 kg

DRUGS (5)
  1. ROZEREM [Suspect]
     Indication: INSOMNIA
     Dosage: 8 MG, QHS, PER ORAL
     Route: 048
     Dates: start: 20061105, end: 20061106
  2. RESTASIS (CICLOSPORIN) (DROPS) [Concomitant]
  3. NASONEX [Concomitant]
  4. LUNESTA [Concomitant]
  5. EXTRA STRENGTH TYLENOL [Concomitant]

REACTIONS (4)
  - HEART RATE INCREASED [None]
  - INSOMNIA [None]
  - MALAISE [None]
  - PRURITUS [None]
